FAERS Safety Report 9645580 (Version 2)
Quarter: 2014Q1

REPORT INFORMATION
  Report Type: Spontaneous
  Country: GB (occurrence: GB)
  Receive Date: 20131025
  Receipt Date: 20140310
  Transmission Date: 20141002
  Serious: Yes (Hospitalization, Other)
  Sender: FDA-Public Use
  Company Number: GB-TEVA-439115ISR

PATIENT
  Age: 72 Year
  Sex: Female
  Weight: 36.6 kg

DRUGS (9)
  1. BENDROFLUMETHIAZIDE [Suspect]
     Indication: HYPERTENSION
     Dosage: 2.5 MILLIGRAM DAILY;
     Route: 048
     Dates: start: 20071031, end: 20130929
  2. OMEPRAZOLE [Suspect]
     Dosage: 20 MILLIGRAM DAILY;
     Route: 048
     Dates: start: 20090810, end: 20130927
  3. AMITRIPTYLINE [Suspect]
     Dosage: 40 MILLIGRAM DAILY; TAKEN AT NIGHT.
     Route: 048
     Dates: start: 20090422
  4. LOSARTAN [Suspect]
     Indication: HYPERTENSION
     Dosage: 75 MILLIGRAM DAILY;
     Route: 048
     Dates: start: 20051123
  5. PHENYTOIN [Concomitant]
  6. AMLODIPINE [Concomitant]
  7. DIAZEPAM [Concomitant]
  8. SIMVASTATIN [Concomitant]
  9. FOLIC ACID [Concomitant]

REACTIONS (3)
  - Hyponatraemia [Recovering/Resolving]
  - Nausea [Unknown]
  - Fatigue [Unknown]
